FAERS Safety Report 6390051-2 (Version None)
Quarter: 2009Q4

REPORT INFORMATION
  Report Type: 
  Country: None (occurrence: None)
  Receive Date: 20091006
  Receipt Date: 20090928
  Transmission Date: 20100525
  Serious: Yes (Other)
  Sender: FDA-Public Use
  Company Number: US-PFIZER INC-2006081919

PATIENT
  Sex: Female
  Weight: 58.05 kg

DRUGS (8)
  1. PROVERA [Suspect]
     Indication: HORMONE REPLACEMENT THERAPY
     Dosage: 2.5 MG, UNK
     Route: 048
     Dates: start: 20010101, end: 20020501
  2. PROVERA [Suspect]
     Indication: MENOPAUSAL SYMPTOMS
  3. OGEN [Suspect]
     Indication: HORMONE REPLACEMENT THERAPY
     Dosage: UNK
     Route: 048
     Dates: start: 19980801, end: 19981201
  4. OGEN [Suspect]
     Indication: MENOPAUSAL SYMPTOMS
  5. PREMARIN [Suspect]
     Indication: HORMONE REPLACEMENT THERAPY
     Dosage: 0.625 MG, UNK
     Route: 065
     Dates: start: 19990401, end: 20020501
  6. PREMARIN [Suspect]
     Indication: MENOPAUSAL SYMPTOMS
  7. CYCRIN [Suspect]
     Indication: HORMONE REPLACEMENT THERAPY
     Dosage: 10 MG, 2.5MG
     Route: 065
     Dates: start: 19980401, end: 20001201
  8. CYCRIN [Suspect]
     Indication: MENOPAUSAL SYMPTOMS
     Dosage: 2.5 MG, UNK
     Route: 065
     Dates: start: 19980901, end: 20001201

REACTIONS (1)
  - BREAST CANCER FEMALE [None]
